FAERS Safety Report 6494222-6 (Version None)
Quarter: 2009Q4

REPORT INFORMATION
  Report Type: 
  Country: None (occurrence: None)
  Receive Date: 20091214
  Receipt Date: 20090224
  Transmission Date: 20100525
  Serious: No
  Sender: FDA-Public Use
  Company Number: US-BRISTOL-MYERS SQUIBB COMPANY-14482590

PATIENT
  Age: 16 Year
  Sex: Male
  Weight: 100 kg

DRUGS (3)
  1. ABILIFY [Suspect]
     Indication: BIPOLAR DISORDER
     Dosage: INCREASED TO 15MG AND DECREASED TO 10MG AND 5MG
     Route: 048
     Dates: start: 20070726
  2. VYVANSE [Interacting]
  3. ZOLOFT [Concomitant]

REACTIONS (2)
  - DISTURBANCE IN SEXUAL AROUSAL [None]
  - DRUG INTERACTION [None]
